FAERS Safety Report 9171827 (Version 2)
Quarter: 2014Q1

REPORT INFORMATION
  Report Type: Spontaneous
  Country: US (occurrence: US)
  Receive Date: 20130319
  Receipt Date: 20140120
  Transmission Date: 20141002
  Serious: Yes (Other)
  Sender: FDA-Public Use
  Company Number: US-BAYER-2013-033247

PATIENT
  Age: 26 Year
  Sex: Female

DRUGS (5)
  1. YAZ [Suspect]
  2. YASMIN [Suspect]
  3. OCELLA [Suspect]
  4. MULTIVITAMIN [Concomitant]
  5. MAGNESIUM OXIDE [Concomitant]
     Dosage: 400 MG, DAILY

REACTIONS (5)
  - Cholecystectomy [None]
  - Cholecystitis chronic [None]
  - Biliary dyskinesia [None]
  - Injury [None]
  - Emotional distress [None]
